FAERS Safety Report 5597054-6 (Version None)
Quarter: 2007Q4

REPORT INFORMATION
  Report Type: 
  Country: None (occurrence: None)
  Receive Date: 20071221
  Receipt Date: 20071119
  Transmission Date: 20080405
  Serious: No
  Sender: FDA-Public Use
  Company Number: SPV1-2007-04983

PATIENT
  Age: 14 Year
  Sex: Male
  Weight: 44.4 kg

DRUGS (1)
  1. VYVANSE [Suspect]
     Indication: ATTENTION DEFICIT/HYPERACTIVITY DISORDER
     Dosage: 50 MG, 1X/DAY:QD, ORAL
     Route: 048
     Dates: start: 20071116, end: 20071119

REACTIONS (4)
  - BLOOD PRESSURE DECREASED [None]
  - DECREASED APPETITE [None]
  - OFF LABEL USE [None]
  - VOMITING [None]
